FAERS Safety Report 11149290 (Version 1)
Quarter: 2015Q2

REPORT INFORMATION
  Report Type: Spontaneous
  Country: CH (occurrence: CH)
  Receive Date: 20150529
  Receipt Date: 20150529
  Transmission Date: 20150821
  Serious: Yes (Death)
  Sender: FDA-Public Use
  Company Number: CH-PFIZER INC-2015139477

PATIENT
  Age: 19 Year

DRUGS (1)
  1. SUTENT [Suspect]
     Active Substance: SUNITINIB MALATE
     Indication: EWING^S SARCOMA
     Dosage: 37.5 MG, DAILY, CONTINUOUSLY

REACTIONS (3)
  - Brain injury [Fatal]
  - Product use issue [Unknown]
  - Pneumothorax [Fatal]
